FAERS Safety Report 24131985 (Version 2)
Quarter: 2024Q4

REPORT INFORMATION
  Report Type: Spontaneous
  Country: US (occurrence: US)
  Receive Date: 20240724
  Receipt Date: 20241107
  Transmission Date: 20250115
  Serious: Yes (Other)
  Sender: CSL BEHRING
  Company Number: US-BEH-2024175972

PATIENT
  Sex: Male
  Weight: 89.4 kg

DRUGS (12)
  1. PRIVIGEN [Suspect]
     Active Substance: HUMAN IMMUNOGLOBULIN G
     Indication: Hypogammaglobulinaemia
     Dosage: 30 G, EVERY 30 DAYS
     Route: 042
     Dates: start: 202302
  2. PRIVIGEN [Suspect]
     Active Substance: HUMAN IMMUNOGLOBULIN G
     Dosage: 30 G (30 DAYS FOR 12 DOSES)
     Route: 042
     Dates: start: 20230629, end: 20240503
  3. ZOVIRAX [Concomitant]
     Active Substance: ACYCLOVIR
     Dosage: 1 DF, BID
     Dates: start: 20230420, end: 20240513
  4. ALLOPURINOL [Concomitant]
     Active Substance: ALLOPURINOL
     Dosage: 1 DF
     Dates: start: 20230523, end: 20240513
  5. CLOBETASOL [Concomitant]
     Active Substance: CLOBETASOL
     Dosage: UNK
     Dates: start: 20230101
  6. CLONAZEPAM [Concomitant]
     Active Substance: CLONAZEPAM
     Dosage: 1 MG, QD
     Route: 048
     Dates: start: 20201109
  7. ACETAMINOPHEN\HYDROCODONE [Concomitant]
     Active Substance: ACETAMINOPHEN\HYDROCODONE
     Dosage: 1 DF, EVERY 6 HR
     Dates: start: 20231227, end: 20240122
  8. IMBRUVICA [Concomitant]
     Active Substance: IBRUTINIB
     Dosage: 3 DF, QD
     Route: 048
  9. METOPROLOL SUCCINATE [Concomitant]
     Active Substance: METOPROLOL SUCCINATE
     Dosage: UNK
     Dates: start: 20200914
  10. OMEPRAZOLE [Concomitant]
     Active Substance: OMEPRAZOLE
     Dosage: 40 MG, BID
     Dates: start: 20200909
  11. SUMATRIPTAN [Concomitant]
     Active Substance: SUMATRIPTAN
     Dosage: UNK
     Dates: start: 20201027, end: 20240625
  12. TADALAFIL [Concomitant]
     Active Substance: TADALAFIL
     Dosage: 1 DF
     Route: 048
     Dates: start: 20221119

REACTIONS (3)
  - Myocardial infarction [Unknown]
  - Contusion [Unknown]
  - Coronary artery disease [Unknown]
